FAERS Safety Report 5889960-X (Version None)
Quarter: 2008Q3

REPORT INFORMATION
  Report Type: 
  Country: None (occurrence: None)
  Receive Date: 20080919
  Receipt Date: 20080910
  Transmission Date: 20090109
  Serious: Yes (Hospitalization)
  Sender: FDA-Public Use
  Company Number: FR-WYE-H06026808

PATIENT
  Sex: Male

DRUGS (8)
  1. CORDARONE [Suspect]
     Route: 048
     Dates: start: 20070101, end: 20080808
  2. LEVOTHYROXINE SODIUM [Concomitant]
     Indication: HYPOTHYROIDISM
     Dosage: DOSE AND FREQUENCY NOT SPECIFIED
     Route: 065
  3. PERMIXON [Concomitant]
     Dosage: DOSE AND FREQUENCY NOT SPECIFIED
     Route: 048
  4. FLUDEX [Concomitant]
     Dosage: 1.5 MG, FREQUENCY NOT SPECIFIED
     Route: 048
  5. LERCAN [Concomitant]
     Dosage: 10 MG, FREQUENCY NOT SPECIFIED
     Route: 048
  6. COVERSYL [Concomitant]
     Dosage: 2 MG, FREQUENCY NOT SPECIFIED
     Route: 048
  7. PRAVASTATIN [Suspect]
     Route: 048
     Dates: end: 20080808
  8. OGAST [Concomitant]
     Dosage: 15 MG, FREQUENCY NOT SPECIFIED
     Route: 048

REACTIONS (3)
  - ANTINUCLEAR ANTIBODY POSITIVE [None]
  - HYPOTHYROIDISM [None]
  - PLEUROPERICARDITIS [None]
